FAERS Safety Report 6417488-7 (Version None)
Quarter: 2009Q4

REPORT INFORMATION
  Report Type: 
  Country: None (occurrence: None)
  Receive Date: 20091028
  Receipt Date: 20091023
  Transmission Date: 20100525
  Serious: Yes (Other)
  Sender: FDA-Public Use
  Company Number: IT-BRISTOL-MYERS SQUIBB COMPANY-14832000

PATIENT
  Age: 68 Year
  Sex: Female

DRUGS (3)
  1. ATAZANAVIR [Suspect]
     Indication: HIV INFECTION
  2. ABACAVIR [Suspect]
  3. LAMIVUDINE [Suspect]

REACTIONS (1)
  - SALIVARY GLAND CALCULUS [None]
